FAERS Safety Report 6213485-5 (Version None)
Quarter: 2009Q2

REPORT INFORMATION
  Report Type: 
  Country: None (occurrence: None)
  Receive Date: 20090601
  Receipt Date: 20090518
  Transmission Date: 20091009
  Serious: Yes (Death)
  Sender: FDA-Public Use
  Company Number: 006502

PATIENT

DRUGS (2)
  1. PLETAL [Suspect]
     Dosage: 200 MG, DAILY DOSE ORAL
     Route: 048
  2. ASPIRIN [Suspect]
     Dosage: 100 MG, DAILY DOSE ORAL
     Route: 048

REACTIONS (8)
  - CORONARY ARTERY DISEASE [None]
  - DIZZINESS [None]
  - GASTROINTESTINAL DISORDER [None]
  - HEADACHE [None]
  - PNEUMONIA [None]
  - RASH [None]
  - RESPIRATORY TRACT INFECTION [None]
  - SUDDEN DEATH [None]
